FAERS Safety Report 9346939 (Version 1)
Quarter: 2013Q2

REPORT INFORMATION
  Report Type: Spontaneous
  Country: CH (occurrence: CH)
  Receive Date: 20130613
  Receipt Date: 20130613
  Transmission Date: 20140414
  Serious: Yes (Other)
  Sender: FDA-Public Use
  Company Number: CH-TEVA-410726ISR

PATIENT
  Age: 63 Year
  Sex: Female
  Weight: 68 kg

DRUGS (6)
  1. CARBOPLATIN-TEVA 450 MG [Suspect]
     Indication: OVARIAN CANCER
     Dosage: 640 MILLIGRAM DAILY; 640 MG / 314 ML (2 MG/ML) OVER 30 MINUTES
     Route: 041
     Dates: start: 20121016
  2. DEXAMETHASONE [Suspect]
     Indication: PRODUCT USED FOR UNKNOWN INDICATION
     Dosage: 20 MILLIGRAM DAILY; CONTINUING
     Route: 048
     Dates: start: 20120925
  3. ONDANSETRON [Suspect]
     Indication: PRODUCT USED FOR UNKNOWN INDICATION
     Dosage: 8 MILLIGRAM DAILY; CONTINUING
     Route: 040
     Dates: start: 20120925
  4. TAXOL [Suspect]
     Indication: PRODUCT USED FOR UNKNOWN INDICATION
     Dosage: 285 MILLIGRAM DAILY;
     Route: 041
     Dates: start: 20120925, end: 20130116
  5. AVASTIN [Suspect]
     Indication: PRODUCT USED FOR UNKNOWN INDICATION
     Dosage: 1000 MILLIGRAM DAILY; CONTINUING
     Route: 041
     Dates: start: 20120925
  6. TAVEGYL INJEKTIONSL?SUNG [Suspect]
     Indication: PRODUCT USED FOR UNKNOWN INDICATION
     Dosage: 2 MILLIGRAM DAILY; CONTINUING
     Route: 040
     Dates: start: 20120925

REACTIONS (5)
  - Rash erythematous [Recovered/Resolved]
  - Dyspnoea [Recovered/Resolved]
  - Tachycardia [Recovered/Resolved]
  - Feeling hot [Recovered/Resolved]
  - Hypersensitivity [Recovered/Resolved]
